FAERS Safety Report 8375704-9 (Version None)
Quarter: 2012Q2

REPORT INFORMATION
  Report Type: 
  Country: None (occurrence: None)
  Receive Date: 20120522
  Receipt Date: 20120518
  Transmission Date: 20120825
  Serious: Yes (Other)
  Sender: FDA-Public Use
  Company Number: US-PFIZER INC-2012121441

PATIENT
  Sex: Male
  Weight: 88.435 kg

DRUGS (1)
  1. LYRICA [Suspect]
     Indication: MYALGIA
     Dosage: 75 MG, 2X/DAY
     Route: 048
     Dates: start: 20111101

REACTIONS (3)
  - SUICIDAL IDEATION [None]
  - DEPRESSION [None]
  - MOOD SWINGS [None]
